FAERS Safety Report 6651469-3 (Version None)
Quarter: 2010Q1

REPORT INFORMATION
  Report Type: 
  Country: None (occurrence: None)
  Receive Date: 20100325
  Receipt Date: 20100315
  Transmission Date: 20100710
  Serious: No
  Sender: FDA-Public Use
  Company Number: US-ROXANE LABORATORIES, INC.-2010-RO-00315RO

PATIENT
  Sex: Male

DRUGS (5)
  1. PREDNISONE [Suspect]
     Indication: CHRONIC OBSTRUCTIVE PULMONARY DISEASE
     Dosage: 60 MG
     Route: 048
  2. PREDNISONE [Suspect]
     Dosage: 50 MG
     Route: 048
  3. PREDNISONE [Suspect]
     Dosage: 40 MG
     Route: 048
  4. PREDNISONE [Suspect]
     Route: 048
  5. SOLU-MEDROL [Concomitant]

REACTIONS (13)
  - ANXIETY [None]
  - ARTHRITIS [None]
  - BACK PAIN [None]
  - DYSPNOEA [None]
  - GAIT DISTURBANCE [None]
  - HEADACHE [None]
  - LETHARGY [None]
  - MUSCLE SPASMS [None]
  - MUSCULOSKELETAL STIFFNESS [None]
  - OSTEOPOROSIS [None]
  - PAIN IN EXTREMITY [None]
  - TENDON PAIN [None]
  - VISUAL IMPAIRMENT [None]
